FAERS Safety Report 21894122 (Version 1)
Quarter: 2023Q1

REPORT INFORMATION
  Report Type: Spontaneous
  Country: US (occurrence: US)
  Receive Date: 20230121
  Receipt Date: 20230121
  Transmission Date: 20230418
  Serious: Yes (Hospitalization, Other)
  Sender: FDA-Public Use
  Company Number: US-AUROBINDO-AUR-APL-2023-001927

PATIENT
  Sex: Female

DRUGS (1)
  1. METFORMIN [Suspect]
     Active Substance: METFORMIN HYDROCHLORIDE
     Indication: Product used for unknown indication
     Dosage: UNK
     Route: 048

REACTIONS (9)
  - Acute kidney injury [Recovering/Resolving]
  - Vomiting [Recovering/Resolving]
  - Nausea [Recovering/Resolving]
  - Visual impairment [Recovering/Resolving]
  - Metabolic acidosis [Recovering/Resolving]
  - Osmolar gap increased [Recovering/Resolving]
  - Anion gap increased [Recovering/Resolving]
  - Hyperlactacidaemia [Recovering/Resolving]
  - Toxicity to various agents [Unknown]
